FAERS Safety Report 12392571 (Version 1)
Quarter: 2016Q2

REPORT INFORMATION
  Report Type: Spontaneous
  Country: US (occurrence: US)
  Receive Date: 20160523
  Receipt Date: 20160523
  Transmission Date: 20160815
  Serious: Yes (Other)
  Sender: FDA-Public Use
  Company Number: US-AMGEN-USASP2016063636

PATIENT
  Sex: Female

DRUGS (3)
  1. KLONOPIN [Concomitant]
     Active Substance: CLONAZEPAM
     Dosage: UNK FIVE A DAY
  2. ENBREL [Suspect]
     Active Substance: ETANERCEPT
     Indication: HEPATIC ENZYME INCREASED
     Dosage: UNK
     Route: 065
     Dates: start: 20160512
  3. KLONOPIN [Concomitant]
     Active Substance: CLONAZEPAM
     Dosage: UNK THREE A DAY

REACTIONS (5)
  - Off label use [Unknown]
  - Haematochezia [Unknown]
  - Restlessness [Unknown]
  - Muscle twitching [Unknown]
  - Muscle spasms [Unknown]

NARRATIVE: CASE EVENT DATE: 201605
